FAERS Safety Report 19897128 (Version 1)
Quarter: 2021Q3

REPORT INFORMATION
  Report Type: Spontaneous
  Country: US (occurrence: US)
  Receive Date: 20210929
  Receipt Date: 20210929
  Transmission Date: 20211014
  Serious: No
  Sender: FDA-Public Use
  Company Number: US-OTSUKA-2021_004083

PATIENT
  Sex: Male

DRUGS (3)
  1. REXULTI [Suspect]
     Active Substance: BREXPIPRAZOLE
     Indication: SCHIZOPHRENIA
     Dosage: 1 MG, UNK
     Route: 065
     Dates: start: 2012
  2. REXULTI [Suspect]
     Active Substance: BREXPIPRAZOLE
     Dosage: 3 MG, UNK
     Route: 065
  3. REXULTI [Suspect]
     Active Substance: BREXPIPRAZOLE
     Dosage: 1 MG, UNK
     Route: 065

REACTIONS (13)
  - Malaise [Unknown]
  - Muscle twitching [Unknown]
  - Drug resistance [Unknown]
  - Cerebral disorder [Unknown]
  - Lethargy [Unknown]
  - Loss of consciousness [Unknown]
  - Depression [Unknown]
  - Drooling [Unknown]
  - Muscle strength abnormal [Unknown]
  - Aggression [Unknown]
  - Sleep disorder [Unknown]
  - Retinal disorder [Unknown]
  - Frontotemporal dementia [Unknown]
